FAERS Safety Report 15746969 (Version 1)
Quarter: 2018Q4

REPORT INFORMATION
  Report Type: Spontaneous
  Country: US (occurrence: US)
  Receive Date: 20181220
  Receipt Date: 20181220
  Transmission Date: 20190205
  Serious: Yes (Other)
  Sender: FDA-Public Use
  Company Number: US-SA-2018SA343393

PATIENT
  Sex: Male

DRUGS (1)
  1. ACT ANTICAVITY FLUORIDE MINT [Suspect]
     Active Substance: SODIUM FLUORIDE
     Route: 065

REACTIONS (1)
  - Coeliac disease [Unknown]
